FAERS Safety Report 9448063 (Version 1)
Quarter: 2013Q3

REPORT INFORMATION
  Report Type: Spontaneous
  Country: US (occurrence: None)
  Receive Date: 20130807
  Receipt Date: 20130807
  Transmission Date: 20140515
  Serious: Yes (Life-Threatening, Hospitalization)
  Sender: FDA-Public Use
  Company Number: None

PATIENT
  Age: 62 Year
  Sex: Male
  Weight: 66.8 kg

DRUGS (1)
  1. OLMESARTAN [Suspect]

REACTIONS (5)
  - Diarrhoea [None]
  - Blood albumin decreased [None]
  - Dehydration [None]
  - Weight decreased [None]
  - Cachexia [None]
